FAERS Safety Report 6083720-5 (Version None)
Quarter: 2009Q1

REPORT INFORMATION
  Report Type: 
  Country: None (occurrence: None)
  Receive Date: 20090205
  Receipt Date: 20080321
  Transmission Date: 20090719
  Serious: Yes (Other)
  Sender: FDA-Public Use
  Company Number: MEDI-0006699

PATIENT
  Age: 72 Year
  Sex: Male
  Weight: 76.65 kg

DRUGS (2)
  1. ETHYOL [Suspect]
     Indication: PROPHYLAXIS
     Dosage: SUBCUTANEOUS
     Route: 058
  2. ETOPOSIDE [Concomitant]

REACTIONS (1)
  - HYPOTENSION [None]
